FAERS Safety Report 8975873 (Version 2)
Quarter: 2013Q1

REPORT INFORMATION
  Report Type: Spontaneous
  Country: CA (occurrence: CA)
  Receive Date: 20121219
  Receipt Date: 20130122
  Transmission Date: 20140127
  Serious: Yes (Other)
  Sender: FDA-Public Use
  Company Number: CA-GLAXOSMITHKLINE-A1004436A

PATIENT
  Age: 69 Year
  Sex: Male

DRUGS (1)
  1. AVODART [Suspect]
     Indication: BENIGN PROSTATIC HYPERPLASIA
     Dosage: .5MG UNKNOWN
     Route: 048
     Dates: start: 20091217, end: 20121031

REACTIONS (3)
  - Prostate cancer [Unknown]
  - Prostatic dysplasia [Unknown]
  - Prostatic specific antigen increased [Not Recovered/Not Resolved]
